FAERS Safety Report 4440142-8 (Version None)
Quarter: 2004Q3

REPORT INFORMATION
  Report Type: 
  Country: None (occurrence: None)
  Receive Date: 20040831
  Receipt Date: 20040708
  Transmission Date: 20050211
  Serious: No
  Sender: FDA-Public Use
  Company Number: 702122

PATIENT
  Sex: Female

DRUGS (1)
  1. AMEVIVE [Suspect]
     Dates: start: 20040101, end: 20040401

REACTIONS (1)
  - OEDEMA PERIPHERAL [None]
